FAERS Safety Report 6139325-0 (Version None)
Quarter: 2009Q2

REPORT INFORMATION
  Report Type: 
  Country: None (occurrence: None)
  Receive Date: 20090401
  Receipt Date: 20090323
  Transmission Date: 20091009
  Serious: Yes (Hospitalization, Other)
  Sender: FDA-Public Use
  Company Number: PHHY2009GB01672

PATIENT
  Sex: Male

DRUGS (4)
  1. CLOZARIL [Suspect]
     Indication: SCHIZOPHRENIA
     Dosage: 400 MG/DAY  100 IN AM AND 300 IN PM
     Dates: start: 20081117
  2. CLOZARIL [Suspect]
     Dosage: 75 MG DAILY
  3. CLOZARIL [Suspect]
     Dosage: 250 MG, UNK
  4. CLOZARIL [Suspect]
     Dosage: 100/150MG

REACTIONS (4)
  - CONVULSION [None]
  - DRUG LEVEL DECREASED [None]
  - DYSKINESIA [None]
  - TREATMENT NONCOMPLIANCE [None]
